FAERS Safety Report 21239234 (Version 1)
Quarter: 2022Q3

REPORT INFORMATION
  Report Type: Spontaneous
  Country: ES (occurrence: ES)
  Receive Date: 20220822
  Receipt Date: 20220822
  Transmission Date: 20221027
  Serious: Yes (Hospitalization, Disabling, Other)
  Sender: FDA-Public Use
  Company Number: None

PATIENT
  Age: 67 Year
  Sex: Female
  Weight: 45 kg

DRUGS (1)
  1. PROLIA [Suspect]
     Active Substance: DENOSUMAB
     Indication: Osteoporosis
     Dosage: 1 SUBCUTANEOUS INJECTION EVERY 6 MONTHS
     Route: 058
     Dates: start: 20150601, end: 20200201

REACTIONS (3)
  - Rebound effect [Recovered/Resolved with Sequelae]
  - Spinal fracture [Recovered/Resolved with Sequelae]
  - Multiple fractures [Recovered/Resolved with Sequelae]

NARRATIVE: CASE EVENT DATE: 20200201
